FAERS Safety Report 7477517-9 (Version None)
Quarter: 2011Q2

REPORT INFORMATION
  Report Type: 
  Country: None (occurrence: None)
  Receive Date: 20110511
  Receipt Date: 20110511
  Transmission Date: 20111010
  Serious: Yes (Other)
  Sender: FDA-Public Use
  Company Number: None

PATIENT
  Sex: Female
  Weight: 63.5036 kg

DRUGS (1)
  1. ZOLPIDEM [Suspect]
     Indication: SLEEP DISORDER THERAPY
     Dosage: 1 TABLET QHS PO
     Route: 048
     Dates: start: 20110401, end: 20110425

REACTIONS (2)
  - TREATMENT FAILURE [None]
  - PRODUCT SUBSTITUTION ISSUE [None]
